FAERS Safety Report 21621216 (Version 4)
Quarter: 2023Q4

REPORT INFORMATION
  Report Type: Spontaneous
  Country: US (occurrence: US)
  Receive Date: 20221121
  Receipt Date: 20231220
  Transmission Date: 20240109
  Serious: No
  Sender: FDA-Public Use
  Company Number: US-BRISTOL-MYERS SQUIBB COMPANY-2022-140476

PATIENT
  Age: 72 Year
  Sex: Female
  Weight: 86.18 kg

DRUGS (3)
  1. REVLIMID [Suspect]
     Active Substance: LENALIDOMIDE
     Indication: Plasma cell myeloma
     Route: 048
     Dates: start: 20190501
  2. REVLIMID [Suspect]
     Active Substance: LENALIDOMIDE
     Route: 048
     Dates: start: 20230519
  3. PREDNISONE [Suspect]
     Active Substance: PREDNISONE
     Indication: Product used for unknown indication

REACTIONS (6)
  - Upper respiratory tract infection [Unknown]
  - Off label use [Unknown]
  - Metapneumovirus infection [Unknown]
  - Coronavirus infection [Unknown]
  - Liver function test abnormal [Unknown]
  - Bone pain [Unknown]

NARRATIVE: CASE EVENT DATE: 20221105
